FAERS Safety Report 9091914 (Version 1)
Quarter: 2013Q1

REPORT INFORMATION
  Report Type: Report from Study
  Country: US (occurrence: US)
  Receive Date: 20130201
  Receipt Date: 20130201
  Transmission Date: 20140127
  Serious: No
  Sender: FDA-Public Use
  Company Number: US-ABBOTT-12P-163-1026997-00

PATIENT
  Age: 62 None
  Sex: Female
  Weight: 110.32 kg

DRUGS (1)
  1. HUMIRA [Suspect]
     Indication: PSORIASIS
     Dates: start: 201203

REACTIONS (6)
  - Drug dose omission [Not Recovered/Not Resolved]
  - Fatigue [Not Recovered/Not Resolved]
  - Uterine spasm [Not Recovered/Not Resolved]
  - Vaginal haemorrhage [Unknown]
  - Menstrual disorder [Not Recovered/Not Resolved]
  - Breast discomfort [Not Recovered/Not Resolved]
